FAERS Safety Report 4884960-0 (Version None)
Quarter: 2005Q4

REPORT INFORMATION
  Report Type: 
  Country: None (occurrence: None)
  Receive Date: 20051201
  Receipt Date: 20050915
  Transmission Date: 20060501
  Serious: No
  Sender: FDA-Public Use
  Company Number: 2005PV002129

PATIENT
  Age: 59 Year
  Sex: Female
  Weight: 104.3273 kg

DRUGS (16)
  1. BYETTA [Suspect]
     Indication: DIABETES MELLITUS NON-INSULIN-DEPENDENT
     Dosage: 5 MCG; BID; SC
     Route: 058
     Dates: start: 20050911
  2. LANTUS [Concomitant]
  3. SYNTHROID [Concomitant]
  4. GLUCOVANCE [Concomitant]
  5. ACTOS [Concomitant]
  6. DIGOXIN [Concomitant]
  7. CATAPRES-2 [Concomitant]
  8. ALTACE [Concomitant]
  9. AVALIDE [Concomitant]
  10. DOXAZOSIN [Concomitant]
  11. TIAZAC [Concomitant]
  12. CELEBREX [Concomitant]
  13. CELEXA [Concomitant]
  14. VYTORIN [Concomitant]
  15. DEMADEX [Concomitant]
  16. ASPIRIN [Concomitant]

REACTIONS (4)
  - INSOMNIA [None]
  - IRRITABILITY [None]
  - NAUSEA [None]
  - STRESS [None]
